FAERS Safety Report 9333629 (Version 1)
Quarter: 2013Q2

REPORT INFORMATION
  Report Type: Spontaneous
  Country: US (occurrence: US)
  Receive Date: 20130606
  Receipt Date: 20130606
  Transmission Date: 20140414
  Serious: No
  Sender: FDA-Public Use
  Company Number: US-AMGEN-USASP2012077878

PATIENT
  Age: 81 Year
  Sex: Female

DRUGS (5)
  1. PROLIA [Suspect]
     Indication: OSTEOPOROSIS POSTMENOPAUSAL
  2. VITAMIN D                          /00107901/ [Concomitant]
  3. CALCIUM [Concomitant]
  4. METHOTREXATE [Concomitant]
  5. FOLIC ACID [Concomitant]

REACTIONS (5)
  - Jaw disorder [Unknown]
  - Mastication disorder [Unknown]
  - Rosacea [Unknown]
  - Cerumen impaction [Unknown]
  - Hair texture abnormal [Unknown]
